FAERS Safety Report 4576202-0 (Version None)
Quarter: 2005Q1

REPORT INFORMATION
  Report Type: 
  Country: None (occurrence: None)
  Receive Date: 20050204
  Receipt Date: 20050121
  Transmission Date: 20050727
  Serious: Yes (Other)
  Sender: FDA-Public Use
  Company Number: 2005018713

PATIENT
  Sex: Male

DRUGS (8)
  1. SULFASALAZINE [Suspect]
     Indication: ILL-DEFINED DISORDER
     Dates: start: 19910101
  2. CELEBREX [Suspect]
     Indication: ILL-DEFINED DISORDER
     Dosage: 200 MG (200 MG, 1 IN 1 D), ORAL
     Route: 048
     Dates: start: 19910101
  3. CYTOTEC [Suspect]
     Indication: ILL-DEFINED DISORDER
     Dates: start: 19910101, end: 20020101
  4. KETOPROFEN [Concomitant]
  5. ACETAMINOPHEN [Concomitant]
  6. ROFECOXIB [Concomitant]
  7. OMEPRAZOLE [Concomitant]
  8. CLOPIDOGREL BISULFATE [Concomitant]

REACTIONS (3)
  - HODGKIN'S DISEASE [None]
  - MYOCARDIAL INFARCTION [None]
  - TRANSIENT ISCHAEMIC ATTACK [None]
